FAERS Safety Report 24172242 (Version 1)
Quarter: 2024Q3

REPORT INFORMATION
  Report Type: Spontaneous
  Country: FR (occurrence: FR)
  Receive Date: 20240805
  Receipt Date: 20240805
  Transmission Date: 20241017
  Serious: Yes (Other)
  Sender: AMGEN
  Company Number: None

PATIENT
  Age: 69 Year
  Sex: Male

DRUGS (23)
  1. VECTIBIX [Suspect]
     Active Substance: PANITUMUMAB
     Indication: Adenocarcinoma of colon
     Dosage: 302 MILLIGRAM (-20%)
     Route: 042
     Dates: start: 20230102, end: 20230102
  2. VECTIBIX [Suspect]
     Active Substance: PANITUMUMAB
     Dosage: 380 MILLIGRAM
     Route: 042
     Dates: start: 20230116, end: 20230116
  3. VECTIBIX [Suspect]
     Active Substance: PANITUMUMAB
     Dosage: 380 MILLIGRAM, EVERY 15 DAY
     Route: 042
     Dates: start: 20230503, end: 20230615
  4. VECTIBIX [Suspect]
     Active Substance: PANITUMUMAB
     Dosage: 380 MILLIGRAM
     Route: 042
     Dates: start: 20230213, end: 20230213
  5. VECTIBIX [Suspect]
     Active Substance: PANITUMUMAB
     Dosage: 400 MILLIGRAM, EVERY 15 DAY
     Route: 042
     Dates: start: 20231005, end: 20240129
  6. VECTIBIX [Suspect]
     Active Substance: PANITUMUMAB
     Dosage: 345 MILLIGRAM (4 MG/KG OVER ONE HOUR)
     Route: 042
     Dates: start: 20221013, end: 20221027
  7. VECTIBIX [Suspect]
     Active Substance: PANITUMUMAB
     Dosage: 378 MILLIGRAM, EVERY 15 DAY (4 MG/KG OVER ONE HOUR)
     Route: 042
     Dates: start: 20220831, end: 20220914
  8. VECTIBIX [Suspect]
     Active Substance: PANITUMUMAB
     Dosage: 260 MILLIGRAM, EVERY 15 DAY (CONCESSION -34%)
     Route: 042
     Dates: start: 20240415
  9. FLUOROURACIL [Suspect]
     Active Substance: FLUOROURACIL
     Indication: Adenocarcinoma of colon
     Dosage: 688 MILLIGRAM
     Route: 040
     Dates: start: 20220831, end: 20220914
  10. FLUOROURACIL [Suspect]
     Active Substance: FLUOROURACIL
     Dosage: 660 MILLIGRAM
     Route: 040
     Dates: start: 20221013, end: 20221027
  11. FLUOROURACIL [Suspect]
     Active Substance: FLUOROURACIL
     Dosage: 4200 MILLIGRAM
     Route: 040
     Dates: start: 20240415, end: 20240527
  12. FLUOROURACIL [Suspect]
     Active Substance: FLUOROURACIL
     Dosage: CONCESSION DOSE -25%
     Route: 040
     Dates: start: 20221013, end: 20221027
  13. FLUOROURACIL [Suspect]
     Active Substance: FLUOROURACIL
     Dosage: CONCESSION -20%
     Route: 040
     Dates: start: 20230102, end: 20230102
  14. FLUOROURACIL [Suspect]
     Active Substance: FLUOROURACIL
     Dosage: 4200 MILLIGRAM
     Route: 040
     Dates: start: 20231005, end: 20240129
  15. FLUOROURACIL [Suspect]
     Active Substance: FLUOROURACIL
     Dosage: 2400 MG/M2 SUR 45H30
     Route: 040
     Dates: start: 20220831, end: 20220914
  16. FLUOROURACIL [Suspect]
     Active Substance: FLUOROURACIL
     Dosage: 4200 MILLIGRAM
     Route: 040
     Dates: start: 20230116, end: 20230213
  17. FLUOROURACIL [Suspect]
     Active Substance: FLUOROURACIL
     Dosage: 4200 MILLIGRAM
     Route: 040
     Dates: start: 20230503
  18. OXALIPLATIN [Concomitant]
     Active Substance: OXALIPLATIN
     Indication: Adenocarcinoma of colon
     Dosage: 146 MILLIGRAM, EVERY 15 DAYS
     Route: 040
     Dates: start: 20220831, end: 20220914
  19. OXALIPLATIN [Concomitant]
     Active Substance: OXALIPLATIN
     Dosage: 99 MILLIGRAM, EVERY 15 DAY (CONCESSION -29%)
     Route: 040
     Dates: start: 20221013, end: 20221027
  20. IRINOTECAN [Concomitant]
     Active Substance: IRINOTECAN
     Indication: Adenocarcinoma of colon
     Dosage: 252 MILLIGRAM (CONCESSION -20%)
     Route: 040
     Dates: start: 20240415, end: 20240527
  21. IRINOTECAN [Concomitant]
     Active Substance: IRINOTECAN
     Dosage: 258 MILLIGRAM (180 MG/M2 SUR 1H30)
     Route: 040
     Dates: start: 20220831, end: 20220914
  22. IRINOTECAN [Concomitant]
     Active Substance: IRINOTECAN
     Dosage: 198 MILLIGRAM (CONCESSION -20%)
     Route: 040
     Dates: start: 20221013, end: 20221027
  23. LEVOLEUCOVORIN CALCIUM [Concomitant]
     Active Substance: LEVOLEUCOVORIN CALCIUM
     Indication: Adenocarcinoma of colon
     Dosage: 35 MILLIGRAM (20MG/M2)
     Route: 040
     Dates: start: 20220831, end: 202405

REACTIONS (1)
  - Ejection fraction decreased [Not Recovered/Not Resolved]

NARRATIVE: CASE EVENT DATE: 20220912
